FAERS Safety Report 4421375-3 (Version None)
Quarter: 2004Q3

REPORT INFORMATION
  Report Type: 
  Country: None (occurrence: None)
  Receive Date: 20040707
  Receipt Date: 20040331
  Transmission Date: 20050211
  Serious: No
  Sender: FDA-Public Use
  Company Number: 357071

PATIENT
  Age: 38 Year
  Sex: Male
  Weight: 60 kg

DRUGS (6)
  1. FUZEON [Suspect]
     Indication: HIV INFECTION
     Dosage: 90 MG 2 PER DAY SUBCUTANEOUS
     Route: 058
     Dates: start: 20031003, end: 20040128
  2. PROCRIT (EPOETIN ALFA) [Concomitant]
  3. REYATAZ [Concomitant]
  4. DAPSONE [Concomitant]
  5. VALTREX [Concomitant]
  6. UNKNOWN DRUG (GENERIC COMPONENT(S) UNKNOWN) [Concomitant]

REACTIONS (5)
  - ERYTHEMA [None]
  - INJECTION SITE REACTION [None]
  - LYMPHOMA [None]
  - PAIN [None]
  - SKIN NODULE [None]
